FAERS Safety Report 21364098 (Version 2)
Quarter: 2022Q3

REPORT INFORMATION
  Report Type: Spontaneous
  Country: JP (occurrence: JP)
  Receive Date: 20220922
  Receipt Date: 20220929
  Transmission Date: 20221027
  Serious: Yes (Death, Other)
  Sender: FDA-Public Use
  Company Number: JP-PFIZER INC-PV202200068284

PATIENT

DRUGS (3)
  1. INLYTA [Suspect]
     Active Substance: AXITINIB
     Route: 048
  2. CABOZANTINIB [Suspect]
     Active Substance: CABOZANTINIB
  3. BAVENCIO [Concomitant]
     Active Substance: AVELUMAB
     Route: 041

REACTIONS (2)
  - Duodenal ulcer [Fatal]
  - Neoplasm progression [Fatal]
